FAERS Safety Report 8819694 (Version 2)
Quarter: 2012Q4

REPORT INFORMATION
  Report Type: Report from Study
  Country: DE (occurrence: DE)
  Receive Date: 20121001
  Receipt Date: 20121019
  Transmission Date: 20130627
  Serious: Yes (Hospitalization)
  Sender: FDA-Public Use
  Company Number: DE-CELGENEUS-062-21880-12092265

PATIENT
  Age: 57 Year
  Sex: Female
  Weight: 56 kg

DRUGS (7)
  1. REVLIMID [Suspect]
     Indication: MULTIPLE MYELOMA
     Route: 048
     Dates: start: 20120629, end: 20120715
  2. MEROPENEM [Concomitant]
     Indication: CYSTITIS
     Dosage: 3 Gram
     Route: 041
     Dates: start: 20120911
  3. LEVOFLOXACIN [Concomitant]
     Indication: CYSTITIS
     Dosage: 3.2 Gram
     Route: 048
     Dates: start: 20120910, end: 20120917
  4. MYCOPHENOLIC ACID [Concomitant]
     Indication: ACUTE GRAFT VERSUS HOST DISEASE
     Dosage: 80
     Route: 048
     Dates: start: 20120312
  5. ACICLOVIR [Concomitant]
     Indication: ANTIVIRAL PROPHYLAXIS
     Dosage: 600 Milligram
     Route: 048
     Dates: start: 20120314
  6. PREDNISOLONE [Concomitant]
     Indication: ACUTE GRAFT VERSUS HOST DISEASE
     Dosage: 25 Milligram
     Route: 048
     Dates: start: 20120716
  7. PREDNISOLONE [Concomitant]
     Dosage: 100 Milligram
     Route: 048
     Dates: start: 20120918

REACTIONS (1)
  - Acute graft versus host disease in intestine [Not Recovered/Not Resolved]
